FAERS Safety Report 16892920 (Version 9)
Quarter: 2019Q4

REPORT INFORMATION
  Report Type: Report from Study
  Country: CA (occurrence: CA)
  Receive Date: 20191007
  Receipt Date: 20191230
  Transmission Date: 20200122
  Serious: Yes (Other)
  Sender: FDA-Public Use
  Company Number: CA-BEH-2019107599

PATIENT
  Age: 41 Year
  Sex: Male

DRUGS (15)
  1. HAEMATE P [Suspect]
     Active Substance: ANTIHEMOPHILIC FACTOR HUMAN
     Dosage: UNK, 2700 RC, THREE TIMES A WEEK PROPHYLACTIC
     Route: 042
  2. TAPAZOLE [Concomitant]
     Active Substance: METHIMAZOLE
     Dosage: 30 MILLIGRAM (5 MG X 6), QD
     Route: 048
     Dates: end: 201911
  3. HAEMATE P [Suspect]
     Active Substance: ANTIHEMOPHILIC FACTOR HUMAN
     Indication: VON WILLEBRAND^S DISEASE
     Dosage: 2700 RCOF THREE TIMES PER WEEK PROPHYLACTIC
     Route: 042
  4. HAEMATE P [Suspect]
     Active Substance: ANTIHEMOPHILIC FACTOR HUMAN
     Indication: VON WILLEBRAND^S DISEASE
     Dosage: 2700 RCOF THREE TIMES PER WEEK PROPHYLACTIC
     Route: 042
  5. HAEMATE P [Suspect]
     Active Substance: ANTIHEMOPHILIC FACTOR HUMAN
     Dosage: 2700 RCOF, TOT
     Route: 042
     Dates: start: 20191204, end: 20191204
  6. TAPAZOLE [Concomitant]
     Active Substance: METHIMAZOLE
     Dosage: 25 MILLIGRAM (5 MG X 5), QD
     Route: 048
     Dates: start: 201911
  7. HAEMATE P [Suspect]
     Active Substance: ANTIHEMOPHILIC FACTOR HUMAN
     Indication: PROPHYLAXIS
     Dosage: UNK, 2700 RCOF, THREE TIMES A WEEK PROPHYLACTIC
     Route: 042
  8. HAEMATE P [Suspect]
     Active Substance: ANTIHEMOPHILIC FACTOR HUMAN
     Dosage: 2700 RCOF, TOT
     Route: 042
     Dates: start: 20191203, end: 20191203
  9. HAEMATE P [Suspect]
     Active Substance: ANTIHEMOPHILIC FACTOR HUMAN
     Indication: PROPHYLAXIS
     Dosage: UNK, 2700 RCOF, THREE TIMES A WEEK PROPHYLACTIC
     Route: 042
  10. HAEMATE P [Suspect]
     Active Substance: ANTIHEMOPHILIC FACTOR HUMAN
     Dosage: UNK, 2700 PC/RCOF, THREE TIMES A WEEK PROPHYLACTIC
     Route: 042
  11. HAEMATE P [Suspect]
     Active Substance: ANTIHEMOPHILIC FACTOR HUMAN
     Dosage: UNK, 2700 PC/RCOF, THREE TIMES A WEEK PROPHYLACTIC
     Route: 042
  12. HAEMATE P [Suspect]
     Active Substance: ANTIHEMOPHILIC FACTOR HUMAN
     Dosage: 2700 RCOF, TOT
     Route: 042
     Dates: start: 20191204, end: 20191204
  13. HAEMATE P [Suspect]
     Active Substance: ANTIHEMOPHILIC FACTOR HUMAN
     Dosage: UNK, 2700 RC, THREE TIMES A WEEK PROPHYLACTIC
     Route: 042
  14. HAEMATE P [Suspect]
     Active Substance: ANTIHEMOPHILIC FACTOR HUMAN
     Dosage: 2700 RCOF, TOT
     Route: 042
     Dates: start: 20191203, end: 20191203
  15. METAMUCIL REGULAR [Concomitant]
     Active Substance: HERBALS\PLANTAGO OVATA LEAF
     Dosage: UNK UNK, OD
     Dates: start: 20191105

REACTIONS (13)
  - Rectal haemorrhage [Recovered/Resolved]
  - Haemorrhoids [Recovered/Resolved]
  - Palpitations [Unknown]
  - Back pain [Unknown]
  - Malaise [Unknown]
  - Haemoglobin decreased [Not Recovered/Not Resolved]
  - Drug ineffective [Unknown]
  - Lethargy [Not Recovered/Not Resolved]
  - Procedural pain [Unknown]
  - Iron deficiency anaemia [Not Recovered/Not Resolved]
  - Pallor [Unknown]
  - Dyspnoea [Not Recovered/Not Resolved]
  - Fatigue [Not Recovered/Not Resolved]
